FAERS Safety Report 8202859-9 (Version None)
Quarter: 2012Q1

REPORT INFORMATION
  Report Type: 
  Country: None (occurrence: None)
  Receive Date: 20120312
  Receipt Date: 20120312
  Transmission Date: 20120608
  Serious: No
  Sender: FDA-Public Use
  Company Number: None

PATIENT
  Age: 31 Year
  Sex: Male
  Weight: 64.41 kg

DRUGS (1)
  1. SHOPRITE ALLERGY AND CONGESTIOIN [Suspect]
     Indication: NASOPHARYNGITIS
     Dosage: 1 TABLET
     Route: 048
     Dates: start: 20091104, end: 20091107

REACTIONS (5)
  - IMPAIRED WORK ABILITY [None]
  - INJURY [None]
  - NERVOUS SYSTEM DISORDER [None]
  - INSOMNIA [None]
  - STRESS [None]
